FAERS Safety Report 9730885 (Version 2)
Quarter: 2013Q4

REPORT INFORMATION
  Report Type: Spontaneous
  Country: BR (occurrence: BR)
  Receive Date: 20131205
  Receipt Date: 20131205
  Transmission Date: 20140711
  Serious: Yes (Hospitalization)
  Sender: FDA-Public Use
  Company Number: BR-B.I. PHARMACEUTICALS,INC./RIDGEFIELD-2013-BI-39548BR

PATIENT
  Sex: 0

DRUGS (1)
  1. TRAYENTA [Suspect]

REACTIONS (1)
  - General physical health deterioration [Unknown]
